FAERS Safety Report 15907122 (Version 1)
Quarter: 2019Q1

REPORT INFORMATION
  Report Type: Spontaneous
  Country: US (occurrence: US)
  Receive Date: 20190204
  Receipt Date: 20190204
  Transmission Date: 20190417
  Serious: No
  Sender: FDA-Public Use
  Company Number: US-PFIZER INC-2019041281

PATIENT
  Age: 63 Year
  Sex: Male
  Weight: 127.1 kg

DRUGS (1)
  1. GABAPENTIN. [Suspect]
     Active Substance: GABAPENTIN
     Dosage: UNK [TAKE UP TO 9 A DAY]

REACTIONS (1)
  - Drug ineffective [Unknown]
